FAERS Safety Report 18656976 (Version 1)
Quarter: 2020Q4

REPORT INFORMATION
  Report Type: Spontaneous
  Country: US (occurrence: US)
  Receive Date: 20201223
  Receipt Date: 20201223
  Transmission Date: 20210114
  Serious: Yes (Death, Other)
  Sender: FDA-Public Use
  Company Number: US-AMGEN-USASP2020204418

PATIENT
  Age: 42 Year
  Sex: Male

DRUGS (11)
  1. CYTARABINE. [Suspect]
     Active Substance: CYTARABINE
     Dosage: 100 MILLIGRAM/SQ. METER, QD X5 DAYS; ADJUSTED TO EVERY 2 WEEKS
     Route: 042
     Dates: start: 201709
  2. CYTARABINE. [Suspect]
     Active Substance: CYTARABINE
     Dosage: 02 GRAM PER SQUARE METRE
     Route: 037
     Dates: start: 201712
  3. CYTARABINE. [Suspect]
     Active Substance: CYTARABINE
     Dosage: 03 GRAM PER SQUARE METRE
     Route: 037
     Dates: start: 201803
  4. FILGRASTIM [Suspect]
     Active Substance: FILGRASTIM
     Indication: PRODUCT USED FOR UNKNOWN INDICATION
     Dosage: UNK
     Route: 065
  5. CLADRIBINE. [Suspect]
     Active Substance: CLADRIBINE
     Indication: LANGERHANS^ CELL HISTIOCYTOSIS
     Dosage: 05 GRAM PER SQUARE METRE
     Route: 037
     Dates: start: 201712
  6. METHOTREXATE. [Concomitant]
     Active Substance: METHOTREXATE
     Dosage: 5 GRAM PER SQUARE METRE
     Route: 037
     Dates: start: 201803
  7. METHOTREXATE. [Concomitant]
     Active Substance: METHOTREXATE
     Dosage: UNK
     Route: 037
     Dates: start: 201712
  8. CYTARABINE. [Suspect]
     Active Substance: CYTARABINE
     Indication: LANGERHANS^ CELL HISTIOCYTOSIS
     Dosage: 100 MILLIGRAM/SQ. METER, QD X5 DAYS; EVERY 4 WEEKS
     Route: 042
     Dates: start: 201705
  9. CYTARABINE. [Suspect]
     Active Substance: CYTARABINE
     Dosage: 02 GRAM PER SQUARE METRE
     Route: 037
     Dates: start: 201802
  10. CYTARABINE. [Suspect]
     Active Substance: CYTARABINE
     Dosage: 03 GRAM PER SQUARE METRE
     Route: 037
     Dates: start: 201801
  11. MITOXANTRONE [Suspect]
     Active Substance: MITOXANTRONE HYDROCHLORIDE
     Indication: LANGERHANS^ CELL HISTIOCYTOSIS
     Dosage: 10 MILLIGRAM/SQ. METER
     Route: 037
     Dates: start: 201712

REACTIONS (2)
  - Death [Fatal]
  - Metastases to meninges [Unknown]

NARRATIVE: CASE EVENT DATE: 201712
